FAERS Safety Report 23456923 (Version 1)
Quarter: 2024Q1

REPORT INFORMATION
  Report Type: Spontaneous
  Country: US (occurrence: None)
  Receive Date: 20240129
  Receipt Date: 20240129
  Transmission Date: 20240409
  Serious: Yes (Hospitalization)
  Sender: FDA-Public Use
  Company Number: None

PATIENT
  Age: 60 Year
  Sex: Female

DRUGS (16)
  1. TACROLIMUS [Suspect]
     Active Substance: TACROLIMUS
     Indication: Renal transplant
     Route: 048
     Dates: start: 20240104
  2. ASPIRIN CHW [Concomitant]
  3. ATENOLOL TAB [Concomitant]
  4. ATORVASTATIN TAB [Concomitant]
  5. AZATHIOPRINE TAB [Concomitant]
  6. CALCIPOTRIEN CRE [Concomitant]
  7. CALCIUM TAB [Concomitant]
  8. CYCLOSPORINE [Concomitant]
  9. FLUOROURACIL CRE [Concomitant]
  10. FUROSEMIDE TAB [Concomitant]
  11. LOSARTAN POT TAB [Concomitant]
  12. MULTI VITAMIN [Concomitant]
  13. MYCOPHENOLATE [Concomitant]
  14. NIACINAMIDE POW [Concomitant]
  15. TRIAMCINOLON OIN [Concomitant]
  16. VITAMIN D CAP [Concomitant]

REACTIONS (1)
  - Ulcer haemorrhage [None]

NARRATIVE: CASE EVENT DATE: 20240121
